FAERS Safety Report 7837316 (Version 3)
Quarter: 2021Q3

REPORT INFORMATION
  Report Type: Spontaneous
  Country: GB (occurrence: IN)
  Receive Date: 20110302
  Receipt Date: 20210714
  Transmission Date: 20211014
  Serious: Yes (Disabling, Other)
  Sender: FDA-Public Use
  Company Number: IN-SANOFI-AVENTIS-2011SA010759

PATIENT
  Age: 70 Year
  Sex: Male

DRUGS (21)
  1. CIPROFLOXACIN. [Interacting]
     Active Substance: CIPROFLOXACIN
     Indication: ANTIBIOTIC THERAPY
     Dosage: 750 MG, Q12H
     Route: 048
  2. TEICOPLANIN SODIUM [Interacting]
     Active Substance: TEICOPLANIN
     Indication: ANTIBIOTIC THERAPY
     Dosage: 400 MG, QD
     Route: 030
  3. TEICOPLANIN SODIUM [Interacting]
     Active Substance: TEICOPLANIN
     Indication: CHALAZION
  4. MEROPENEM. [Interacting]
     Active Substance: MEROPENEM
     Indication: ANTIBIOTIC THERAPY
     Dosage: 2 MG,BID (2 G, 2X/DAY)
     Route: 042
  5. ACETYLSALICYLIC ACID [Interacting]
     Active Substance: ASPIRIN
     Indication: ANTIPLATELET THERAPY
     Dosage: 300 MG, QD
     Route: 065
  6. ERYTHROMYCIN. [Interacting]
     Active Substance: ERYTHROMYCIN
     Indication: PERIORBITAL CELLULITIS
  7. CLOPIDOGREL BISULFATE. [Interacting]
     Active Substance: CLOPIDOGREL BISULFATE
     Indication: CHEST PAIN
     Dosage: 75 MG,QD
     Route: 065
  8. WARFARIN SODIUM. [Interacting]
     Active Substance: WARFARIN SODIUM
     Indication: PULMONARY EMBOLISM
     Dosage: UNK
  9. METRONIDAZOLE. [Interacting]
     Active Substance: METRONIDAZOLE
     Indication: ANTIBIOTIC THERAPY
     Dosage: 400 MG,TID
     Route: 048
  10. WARFARIN SODIUM. [Interacting]
     Active Substance: WARFARIN SODIUM
     Indication: FACTOR V DEFICIENCY
  11. CIPROFLOXACIN. [Interacting]
     Active Substance: CIPROFLOXACIN
     Indication: PERIORBITAL CELLULITIS
  12. MEROPENEM. [Interacting]
     Active Substance: MEROPENEM
     Indication: CHALAZION
  13. CLOPIDOGREL BISULFATE. [Suspect]
     Active Substance: CLOPIDOGREL BISULFATE
     Indication: ANTIPLATELET THERAPY
     Dosage: 300 MG, QD
     Route: 065
  14. METRONIDAZOLE. [Interacting]
     Active Substance: METRONIDAZOLE
     Indication: CHALAZION
  15. ERYTHROMYCIN. [Interacting]
     Active Substance: ERYTHROMYCIN
     Indication: ANTIBIOTIC THERAPY
     Dosage: 250 MG, QID
     Route: 048
  16. METRONIDAZOLE. [Interacting]
     Active Substance: METRONIDAZOLE
     Indication: PERIORBITAL CELLULITIS
  17. TEICOPLANIN SODIUM [Interacting]
     Active Substance: TEICOPLANIN
     Indication: PERIORBITAL CELLULITIS
  18. ACETYLSALICYLIC ACID [Interacting]
     Active Substance: ASPIRIN
     Indication: CHEST PAIN
     Dosage: 75 MG,QD
     Route: 065
  19. ERYTHROMYCIN. [Interacting]
     Active Substance: ERYTHROMYCIN
     Indication: CHALAZION
  20. CIPROFLOXACIN. [Interacting]
     Active Substance: CIPROFLOXACIN
     Indication: CHALAZION
  21. MEROPENEM. [Interacting]
     Active Substance: MEROPENEM
     Indication: PERIORBITAL CELLULITIS

REACTIONS (10)
  - Eye pain [Unknown]
  - Pyrexia [Unknown]
  - Spontaneous hyphaema [Unknown]
  - International normalised ratio increased [Recovered/Resolved]
  - Visual acuity reduced [Unknown]
  - Nausea [Unknown]
  - Intraocular pressure increased [Not Recovered/Not Resolved]
  - Headache [Unknown]
  - Decreased appetite [Unknown]
  - Drug interaction [Unknown]
